FAERS Safety Report 9420001 (Version 2)
Quarter: 2013Q4

REPORT INFORMATION
  Report Type: Report from Study
  Country: US (occurrence: US)
  Receive Date: 20130725
  Receipt Date: 20131022
  Transmission Date: 20140711
  Serious: Yes (Hospitalization)
  Sender: FDA-Public Use
  Company Number: US-ACTELION-A-US2013-84104

PATIENT
  Age: 77 Year
  Sex: Female

DRUGS (4)
  1. TRACLEER [Suspect]
     Indication: PULMONARY ARTERIAL HYPERTENSION
     Dosage: UNK
     Route: 048
  2. TYVASO [Concomitant]
  3. COUMADIN [Concomitant]
  4. SILDENAFIL [Concomitant]
     Route: 048

REACTIONS (11)
  - Gastric mucosal lesion [Unknown]
  - Gastric haemorrhage [Unknown]
  - Hiatus hernia [Unknown]
  - Pharyngeal oedema [Unknown]
  - Rectal haemorrhage [Unknown]
  - Pericardial effusion [Unknown]
  - Anaemia [Unknown]
  - Transfusion [Unknown]
  - Hypotension [Unknown]
  - Drug dose omission [Unknown]
  - Coagulopathy [Unknown]
